FAERS Safety Report 14262370 (Version 1)
Quarter: 2017Q4

REPORT INFORMATION
  Report Type: Report from Study
  Country: US (occurrence: US)
  Receive Date: 20171208
  Receipt Date: 20171208
  Transmission Date: 20180321
  Serious: No
  Sender: FDA-Public Use
  Company Number: US-KYOWAKIRIN-2017BKK001400

PATIENT

DRUGS (2)
  1. GRANISETRON [Suspect]
     Active Substance: GRANISETRON
     Indication: NAUSEA
     Dosage: 1 DF, APPLY ONE PATCH AND LEAVE ON FOR 7 DAYS
     Route: 062
     Dates: start: 20170508, end: 201705
  2. GRANISETRON [Suspect]
     Active Substance: GRANISETRON
     Indication: VOMITING

REACTIONS (6)
  - Night sweats [Unknown]
  - Inappropriate schedule of drug administration [Unknown]
  - Malaise [Unknown]
  - Product use in unapproved indication [Unknown]
  - Product adhesion issue [Unknown]
  - Memory impairment [Unknown]

NARRATIVE: CASE EVENT DATE: 2017
